FAERS Safety Report 13958425 (Version 5)
Quarter: 2019Q4

REPORT INFORMATION
  Report Type: Spontaneous
  Country: US (occurrence: US)
  Receive Date: 20170912
  Receipt Date: 20191015
  Transmission Date: 20200122
  Serious: Yes (Hospitalization)
  Sender: FDA-Public Use
  Company Number: US-PFIZER INC-2017391582

PATIENT
  Age: 74 Year
  Sex: Female
  Weight: 81 kg

DRUGS (9)
  1. METHOTREXATE. [Concomitant]
     Active Substance: METHOTREXATE
     Dosage: 7.5 MG, UNK
  2. XELJANZ XR [Suspect]
     Active Substance: TOFACITINIB CITRATE
     Dosage: 11 MG, 1X/DAY
     Route: 048
     Dates: end: 20190425
  3. METHOTREXATE. [Concomitant]
     Active Substance: METHOTREXATE
     Indication: RHEUMATOID ARTHRITIS
     Dosage: 75 MG, WEEKLY(25 MG 3 TABLET)
     Route: 048
  4. XELJANZ XR [Suspect]
     Active Substance: TOFACITINIB CITRATE
     Indication: RHEUMATOID ARTHRITIS
     Dosage: 11 MG, DAILY
     Route: 048
     Dates: start: 20140222
  5. LOSARTAN POT [Concomitant]
     Active Substance: LOSARTAN POTASSIUM
     Dosage: 25 MG, UNK
  6. FOLIC ACID. [Concomitant]
     Active Substance: FOLIC ACID
     Dosage: UNK
  7. XELJANZ XR [Suspect]
     Active Substance: TOFACITINIB CITRATE
     Dosage: 11 MG, 1X/DAY
     Route: 048
     Dates: start: 201701
  8. AMLODIPINE [Concomitant]
     Active Substance: AMLODIPINE BESYLATE
     Dosage: 5 MG, UNK
  9. XELJANZ XR [Suspect]
     Active Substance: TOFACITINIB CITRATE
     Dosage: 20 MG, 1X/DAY
     Dates: start: 20190607

REACTIONS (7)
  - Gait disturbance [Not Recovered/Not Resolved]
  - Condition aggravated [Recovering/Resolving]
  - Feeling abnormal [Not Recovered/Not Resolved]
  - Weight increased [Recovering/Resolving]
  - Off label use [Recovering/Resolving]
  - Arthralgia [Not Recovered/Not Resolved]
  - Product use issue [Recovering/Resolving]

NARRATIVE: CASE EVENT DATE: 2019
